FAERS Safety Report 8784534 (Version 1)
Quarter: 2012Q4

REPORT INFORMATION
  Report Type: Spontaneous
  Country: US (occurrence: None)
  Receive Date: 20120907
  Receipt Date: 20120907
  Transmission Date: 20130627
  Serious: Yes (Other)
  Sender: FDA-Public Use
  Company Number: None

PATIENT
  Age: 61 Year
  Sex: Female
  Weight: 92.08 kg

DRUGS (1)
  1. CLOPIDOGREL [Suspect]
     Indication: STENT PLACEMENT
     Dates: start: 20120726, end: 20120902

REACTIONS (13)
  - Fatigue [None]
  - Arthralgia [None]
  - Myalgia [None]
  - Pain in extremity [None]
  - Arthralgia [None]
  - Back pain [None]
  - Pelvic pain [None]
  - Mobility decreased [None]
  - Screaming [None]
  - Joint range of motion decreased [None]
  - Activities of daily living impaired [None]
  - Stomatitis [None]
  - Product substitution issue [None]
